APPROVED DRUG PRODUCT: CEFACLOR
Active Ingredient: CEFACLOR
Strength: EQ 375MG BASE/5ML
Dosage Form/Route: FOR SUSPENSION;ORAL
Application: A064207 | Product #001
Applicant: WATSON LABORATORIES INC
Approved: Feb 18, 1998 | RLD: No | RS: No | Type: DISCN